FAERS Safety Report 8742949 (Version 3)
Quarter: 2012Q4

REPORT INFORMATION
  Report Type: 
  Country: JP (occurrence: JP)
  Receive Date: 20120824
  Receipt Date: 20120907
  Transmission Date: 20130627
  Serious: Yes (Other)
  Sender: FDA-Public Use
  Company Number: PHHY2012JP071750

PATIENT
  Age: 19 Year
  Sex: Male

DRUGS (3)
  1. CICLOSPORIN [Suspect]
     Indication: ANGIOLYMPHOID HYPERPLASIA WITH EOSINOPHILIA
  2. CORTICOSTEROIDS [Concomitant]
     Indication: ANGIOLYMPHOID HYPERPLASIA WITH EOSINOPHILIA
  3. IRRADIATION [Concomitant]
     Dosage: 30 GY, UNK

REACTIONS (4)
  - Salivary gland neoplasm [Unknown]
  - Parotid gland enlargement [Unknown]
  - Renal failure [Unknown]
  - Neoplasm progression [Unknown]
